FAERS Safety Report 25125128 (Version 4)
Quarter: 2025Q2

REPORT INFORMATION
  Report Type: Spontaneous
  Country: US (occurrence: US)
  Receive Date: 20250326
  Receipt Date: 20250606
  Transmission Date: 20250717
  Serious: No
  Sender: BIOVITRUM
  Company Number: US-BIOVITRUM-2025-US-004116

PATIENT
  Age: 76 Year
  Sex: Male

DRUGS (1)
  1. VONJO [Suspect]
     Active Substance: PACRITINIB
     Indication: Thrombocytopenia
     Route: 048
     Dates: start: 20250311, end: 202504

REACTIONS (6)
  - Rash pruritic [Recovering/Resolving]
  - Intentional product misuse [Recovered/Resolved]
  - Asthenia [Unknown]
  - Constipation [Unknown]
  - Haemoglobin decreased [Unknown]
  - Platelet count decreased [Unknown]

NARRATIVE: CASE EVENT DATE: 20250311
